FAERS Safety Report 15454930 (Version 1)
Quarter: 2018Q4

REPORT INFORMATION
  Report Type: Spontaneous
  Country: US (occurrence: US)
  Receive Date: 20181002
  Receipt Date: 20181002
  Transmission Date: 20190204
  Serious: No
  Sender: FDA-Public Use
  Company Number: US-AVEDRO-AVE-2018-0217-AE

PATIENT
  Sex: Female

DRUGS (1)
  1. PHOTREXA [Suspect]
     Active Substance: RIBOFLAVIN 5^-PHOSPHATE SODIUM
     Indication: CORNEAL DISORDER
     Route: 047
     Dates: start: 20180611, end: 20180611

REACTIONS (1)
  - Keratitis fungal [Unknown]

NARRATIVE: CASE EVENT DATE: 2018
